FAERS Safety Report 10236220 (Version 1)
Quarter: 2014Q2

REPORT INFORMATION
  Report Type: Spontaneous
  Country: DE (occurrence: DE)
  Receive Date: 20140613
  Receipt Date: 20140613
  Transmission Date: 20141212
  Serious: Yes (Other)
  Sender: FDA-Public Use
  Company Number: DE-ACTAVIS-2014-12231

PATIENT
  Age: 68 Year
  Sex: Female
  Weight: 65 kg

DRUGS (5)
  1. ATORVASTATIN (UNKNOWN) [Suspect]
     Indication: ANGIOSCLEROSIS
     Dosage: 20 MG, UNK
     Route: 048
     Dates: start: 200001, end: 200005
  2. ATORVASTATIN (UNKNOWN) [Suspect]
     Dosage: 40 MG, UNK
     Route: 048
     Dates: start: 200305, end: 200510
  3. SIMVASTATIN (UNKNOWN) [Suspect]
     Indication: ANGIOSCLEROSIS
     Dosage: 80 MG, UNK
     Route: 048
     Dates: start: 200511, end: 200601
  4. SIMVASTATIN (UNKNOWN) [Suspect]
     Dosage: 40 MG, UNK
     Route: 048
     Dates: start: 200605, end: 200710
  5. LOVASTATIN (UNKNOWN) [Suspect]
     Indication: LOW DENSITY LIPOPROTEIN INCREASED
     Dosage: 40 MG, UNK
     Route: 048
     Dates: start: 200710, end: 200801

REACTIONS (3)
  - Rhabdomyolysis [Recovering/Resolving]
  - Blood creatine phosphokinase increased [Recovering/Resolving]
  - Myalgia [Recovering/Resolving]
